FAERS Safety Report 7461028-0 (Version None)
Quarter: 2011Q2

REPORT INFORMATION
  Report Type: 
  Country: None (occurrence: None)
  Receive Date: 20110505
  Receipt Date: 20110429
  Transmission Date: 20111010
  Serious: Yes (Hospitalization)
  Sender: FDA-Public Use
  Company Number: US-GENZYME-RENA-1001172

PATIENT

DRUGS (2)
  1. RENVELA [Suspect]
     Indication: HYPERPHOSPHATAEMIA
     Dosage: UNK
     Dates: end: 20110426
  2. RENVELA [Suspect]
     Dosage: 3.2 G, TID
     Dates: start: 20110426

REACTIONS (4)
  - DYSPHAGIA [None]
  - EATING DISORDER [None]
  - VOMITING [None]
  - HOSPITALISATION [None]
